FAERS Safety Report 8297542-8 (Version None)
Quarter: 2012Q2

REPORT INFORMATION
  Report Type: 
  Country: None (occurrence: None)
  Receive Date: 20120419
  Receipt Date: 20120411
  Transmission Date: 20120825
  Serious: Yes (Other)
  Sender: FDA-Public Use
  Company Number: PHEH2012US007827

PATIENT
  Sex: Female

DRUGS (3)
  1. LEVETIRACETAM [Concomitant]
  2. SANDOSTATIN LAR [Suspect]
     Route: 030
  3. METOPROLOL TARTRATE [Concomitant]

REACTIONS (2)
  - BRAIN NEOPLASM [None]
  - OPEN WOUND [None]
